FAERS Safety Report 8017823-2 (Version None)
Quarter: 2012Q1

REPORT INFORMATION
  Report Type: 
  Country: None (occurrence: None)
  Receive Date: 20120103
  Receipt Date: 20111228
  Transmission Date: 20120608
  Serious: No
  Sender: FDA-Public Use
  Company Number: US-PFIZER INC-2011307738

PATIENT
  Sex: Female
  Weight: 57.596 kg

DRUGS (2)
  1. HYDROCODONE [Concomitant]
     Dosage: 7.5 MG, DAILY
  2. FLECTOR [Suspect]
     Indication: BACK DISORDER
     Dosage: UNK, 2X/DAY
     Dates: start: 20110101, end: 20110101

REACTIONS (1)
  - RASH [None]
